FAERS Safety Report 4266339-8 (Version None)
Quarter: 2004Q1

REPORT INFORMATION
  Report Type: 
  Country: None (occurrence: None)
  Receive Date: 20040106
  Receipt Date: 20031224
  Transmission Date: 20041129
  Serious: Yes (Hospitalization)
  Sender: FDA-Public Use
  Company Number: 2003124789

PATIENT
  Age: 18 Year
  Sex: Female

DRUGS (8)
  1. ATARAX [Suspect]
     Indication: ILL-DEFINED DISORDER
     Dosage: 25 MG (DAILY), ORAL
     Route: 048
     Dates: start: 20030728, end: 20030730
  2. ZOLOFT [Suspect]
     Indication: ILL-DEFINED DISORDER
     Dosage: 50 MG (DAILY), ORAL
     Route: 048
     Dates: start: 20030728, end: 20030730
  3. APOREX (PARACETAMOL, DEXTROPROPOXYPHENE HYDROCHLORIDE) [Suspect]
     Indication: ILL-DEFINED DISORDER
     Dosage: ORAL
     Route: 048
     Dates: start: 20030729, end: 20030730
  4. CYAMEMAZINE (CYAMEMAZINE) [Concomitant]
  5. BROMAZEPAM (BROMAZEPAM) [Concomitant]
  6. SPASFON (PHLOROGLUCINOL, TRIMETHYLPHLOROGLUCINOL) [Concomitant]
  7. IBUPROFEN [Concomitant]
  8. NORFLOXACIN [Concomitant]

REACTIONS (2)
  - GENITOURINARY TRACT INFECTION [None]
  - URINARY RETENTION [None]
